FAERS Safety Report 14492461 (Version 1)
Quarter: 2018Q1

REPORT INFORMATION
  Report Type: Spontaneous
  Country: US (occurrence: US)
  Receive Date: 20180205
  Receipt Date: 20180205
  Transmission Date: 20180509
  Serious: Yes (Other)
  Sender: FDA-Public Use
  Company Number: None

PATIENT
  Sex: Female
  Weight: 69.3 kg

DRUGS (5)
  1. TIZANIDINE. [Concomitant]
     Active Substance: TIZANIDINE
  2. ZOLPIDEM [Concomitant]
     Active Substance: ZOLPIDEM\ZOLPIDEM TARTRATE
  3. LIDOCAINE. [Suspect]
     Active Substance: LIDOCAINE
     Indication: IMPAIRED HEALING
     Dosage: ?          QUANTITY:.2 CC;OTHER FREQUENCY:10-12 TIMES A DAY;?
     Route: 061
     Dates: start: 20180128, end: 20180205
  4. LIDOCAINE. [Suspect]
     Active Substance: LIDOCAINE
     Indication: SURGERY
     Dosage: ?          QUANTITY:.2 CC;OTHER FREQUENCY:10-12 TIMES A DAY;?
     Route: 061
     Dates: start: 20180128, end: 20180205
  5. BRIZIACT [Concomitant]

REACTIONS (1)
  - Impaired driving ability [None]

NARRATIVE: CASE EVENT DATE: 20180202
